FAERS Safety Report 25057968 (Version 1)
Quarter: 2025Q1

REPORT INFORMATION
  Report Type: Spontaneous
  Country: US (occurrence: None)
  Receive Date: 20250309
  Receipt Date: 20250309
  Transmission Date: 20250409
  Serious: Yes (Other)
  Sender: FDA-CTU
  Company Number: None

PATIENT
  Age: 29 Year
  Sex: Female
  Weight: 67.5 kg

DRUGS (2)
  1. BENGAY ARTHRITIS PAIN RELIEVING [Suspect]
     Active Substance: MENTHOL\METHYL SALICYLATE
     Indication: Product use in unapproved indication
     Dosage: FREQUENCY : DAILY;?
     Route: 061
  2. ALEVE [Concomitant]
     Active Substance: NAPROXEN SODIUM

REACTIONS (5)
  - Accidental exposure to product [None]
  - Hair texture abnormal [None]
  - Alopecia [None]
  - Tinnitus [None]
  - Skin burning sensation [None]

NARRATIVE: CASE EVENT DATE: 20250302
